FAERS Safety Report 24113680 (Version 1)
Quarter: 2024Q3

REPORT INFORMATION
  Report Type: Report from Study
  Country: US (occurrence: US)
  Receive Date: 20240720
  Receipt Date: 20240720
  Transmission Date: 20241017
  Serious: Yes (Hospitalization, Other)
  Sender: AUROBINDO
  Company Number: US-AUROBINDO-AUR-APL-2024-035498

PATIENT
  Age: 29 Day

DRUGS (12)
  1. KETAMINE HYDROCHLORIDE [Suspect]
     Active Substance: KETAMINE HYDROCHLORIDE
     Indication: Status epilepticus
     Dosage: UNK
     Route: 042
  2. KETAMINE HYDROCHLORIDE [Suspect]
     Active Substance: KETAMINE HYDROCHLORIDE
     Dosage: 1 MILLIGRAM/KILOGRAM (1 MG/KG/HR AND TITRATED TO A MAXIMUM RATE OF 4.5 MG/KG/HR OVER 2 DAYS)
     Route: 040
  3. LORAZEPAM [Suspect]
     Active Substance: LORAZEPAM
     Indication: Status epilepticus
     Dosage: 0.1 MILLIGRAM/KILOGRAM (SINGLE DOSE)
     Route: 065
  4. LEVETIRACETAM [Suspect]
     Active Substance: LEVETIRACETAM
     Indication: Status epilepticus
     Dosage: 30 MILLIGRAM/KILOGRAM, TWO TIMES A DAY
     Route: 042
  5. LEVETIRACETAM [Suspect]
     Active Substance: LEVETIRACETAM
     Dosage: 1 MILLIGRAM/KILOGRAM (AT HOSPITAL DAY 2)
     Route: 042
  6. LEVETIRACETAM [Suspect]
     Active Substance: LEVETIRACETAM
     Dosage: UNK, 0.5 MG/KG/HR TO A RATE OF 2 MG/KG/HR ON DAY 3
     Route: 042
  7. PHENOBARBITAL [Suspect]
     Active Substance: PHENOBARBITAL
     Indication: Status epilepticus
     Dosage: 10 MILLIGRAM/KILOGRAM
     Route: 042
  8. FOSPHENYTOIN [Suspect]
     Active Substance: FOSPHENYTOIN
     Indication: Status epilepticus
     Dosage: UNK, 20-MG PHENYTOIN EQUIVALENTS (PES)/KG WAS GIVEN FOLLOWED BY 3 ADDITIONAL DOSES OF PHENOBARBITAL
     Route: 065
  9. MIDAZOLAM [Suspect]
     Active Substance: MIDAZOLAM
     Indication: Status epilepticus
     Dosage: 0.1 MILLIGRAM/KILOGRAM
     Route: 065
  10. MIDAZOLAM [Suspect]
     Active Substance: MIDAZOLAM
     Dosage: UNK, TITRATED TO A MAXIMUM OF 0.9 MG/KG/HR OVER 16 HOURS
     Route: 065
  11. LACOSAMIDE [Concomitant]
     Active Substance: LACOSAMIDE
     Indication: Status epilepticus
     Dosage: 3 MILLIGRAM/KILOGRAM, TWO TIMES A DAY
     Route: 048
  12. TOPIRAMATE [Concomitant]
     Active Substance: TOPIRAMATE
     Indication: Status epilepticus
     Dosage: 4 MILLIGRAM/KILOGRAM, TWO TIMES A DAY
     Route: 048

REACTIONS (1)
  - Drug ineffective [Unknown]
